FAERS Safety Report 9152870 (Version 1)
Quarter: 2013Q1

REPORT INFORMATION
  Report Type: Spontaneous
  Country: PL (occurrence: PL)
  Receive Date: 20130309
  Receipt Date: 20130309
  Transmission Date: 20140127
  Serious: Yes (Other)
  Sender: FDA-Public Use
  Company Number: PL-UCBSA-079890

PATIENT
  Age: 23 Year
  Sex: Female

DRUGS (4)
  1. KEPPRA [Suspect]
     Indication: EPILEPSY
     Dosage: 1000 MG -2 TIMES
  2. KEPPRA [Suspect]
     Indication: EPILEPSY
     Dosage: 500MG-2 TIMES
  3. VALPROATE [Concomitant]
     Dosage: 1000MG -2 TIMES
  4. GABAPENTIN [Concomitant]
     Dosage: 1200MG-3 TIMES

REACTIONS (6)
  - Caesarean section [Unknown]
  - Somnolence [Unknown]
  - Tremor [Recovered/Resolved]
  - Alopecia [Recovered/Resolved]
  - Pregnancy [Recovered/Resolved]
  - Breast feeding [Unknown]
